FAERS Safety Report 9803574 (Version 2)
Quarter: 2014Q1

REPORT INFORMATION
  Report Type: Spontaneous
  Country: US (occurrence: US)
  Receive Date: 20140108
  Receipt Date: 20140221
  Transmission Date: 20141002
  Serious: No
  Sender: FDA-Public Use
  Company Number: US-009507513-1401USA000510

PATIENT
  Age: 78 Year
  Sex: Female

DRUGS (2)
  1. NASONEX [Suspect]
     Indication: OTORRHOEA
     Dosage: UNK
     Route: 045
     Dates: start: 201311
  2. NASONEX [Suspect]
     Indication: DEAFNESS

REACTIONS (2)
  - Off label use [Not Recovered/Not Resolved]
  - Drug ineffective for unapproved indication [Unknown]
